FAERS Safety Report 24126267 (Version 2)
Quarter: 2024Q3

REPORT INFORMATION
  Report Type: Spontaneous
  Country: US (occurrence: US)
  Receive Date: 20240723
  Receipt Date: 20240925
  Transmission Date: 20241017
  Serious: Yes (Hospitalization, Other)
  Sender: INCYTE
  Company Number: US-INCYTE CORPORATION-2024IN007588

PATIENT

DRUGS (3)
  1. JAKAFI [Suspect]
     Active Substance: RUXOLITINIB
     Indication: Immunodeficiency
     Dosage: 10 MILLIGRAM, BID
     Route: 048
  2. JAKAFI [Suspect]
     Active Substance: RUXOLITINIB
     Indication: Epstein-Barr viraemia
     Dosage: 10 MILLIGRAM, BID
     Route: 048
  3. HIZENTRA [Concomitant]
     Active Substance: HUMAN IMMUNOGLOBULIN G
     Indication: Product used for unknown indication
     Dosage: 4 GM 20ML VIAL
     Route: 065

REACTIONS (6)
  - Pneumothorax [Unknown]
  - Respiratory distress [Unknown]
  - Dyspnoea [Unknown]
  - Cough [Unknown]
  - Immune system disorder [Unknown]
  - Off label use [Unknown]
